FAERS Safety Report 6565948-0 (Version None)
Quarter: 2010Q1

REPORT INFORMATION
  Report Type: 
  Country: None (occurrence: None)
  Receive Date: 20100129
  Receipt Date: 20100129
  Transmission Date: 20100710
  Serious: Yes (Life-Threatening, Hospitalization)
  Sender: FDA-Public Use
  Company Number: None

PATIENT
  Age: 34 Year
  Sex: Female
  Weight: 75 kg

DRUGS (13)
  1. XOLAIR [Suspect]
     Indication: SYSTEMIC MASTOCYTOSIS
     Dosage: 150MG Q 3 WEEKS SQ
     Route: 058
     Dates: start: 20091202, end: 20091222
  2. XOLAIR [Suspect]
     Indication: SYSTEMIC MASTOCYTOSIS
     Dosage: 150MG Q 3 WEEKS SQ
     Route: 058
     Dates: start: 20091222, end: 20100115
  3. XOLAIR [Suspect]
     Indication: SYSTEMIC MASTOCYTOSIS
  4. TRINESSA [Concomitant]
  5. PREDNISONE [Concomitant]
  6. GASTROCROM [Concomitant]
  7. ZANTAC [Concomitant]
  8. OMEPRAZOLE [Concomitant]
  9. KLONOPIN [Concomitant]
  10. PROZAC [Concomitant]
  11. HYDROXYZINE [Concomitant]
  12. SINGULAIR [Concomitant]
  13. ALLEGRA [Concomitant]

REACTIONS (10)
  - ABDOMINAL DISTENSION [None]
  - COAGULOPATHY [None]
  - CONSTIPATION [None]
  - DISEASE RECURRENCE [None]
  - FIBRIN D DIMER INCREASED [None]
  - HYPERCOAGULATION [None]
  - ISCHAEMIC CEREBRAL INFARCTION [None]
  - OEDEMA PERIPHERAL [None]
  - OFF LABEL USE [None]
  - SYSTEMIC MASTOCYTOSIS [None]
